FAERS Safety Report 17937335 (Version 3)
Quarter: 2020Q3

REPORT INFORMATION
  Report Type: Report from Study
  Country: CA (occurrence: CA)
  Receive Date: 20200624
  Receipt Date: 20200714
  Transmission Date: 20201103
  Serious: Yes (Other)
  Sender: FDA-Public Use
  Company Number: CA-JNJFOC-20200232309

PATIENT
  Age: 57 Year
  Sex: Male
  Weight: 64.6 kg

DRUGS (1)
  1. REMICADE [Suspect]
     Active Substance: INFLIXIMAB
     Indication: CROHN^S DISEASE
     Route: 042
     Dates: start: 20160616

REACTIONS (11)
  - Rhinorrhoea [Unknown]
  - Influenza like illness [Unknown]
  - Muscle spasms [Unknown]
  - Insomnia [Unknown]
  - Malaise [Unknown]
  - Stomach scan [Unknown]
  - Chronic obstructive pulmonary disease [Unknown]
  - Influenza [Unknown]
  - Nasopharyngitis [Unknown]
  - Pneumonia [Unknown]
  - Headache [Unknown]

NARRATIVE: CASE EVENT DATE: 20200220
